FAERS Safety Report 10081620 (Version 1)
Quarter: 2014Q2

REPORT INFORMATION
  Report Type: Spontaneous
  Country: US (occurrence: US)
  Receive Date: 20140416
  Receipt Date: 20140416
  Transmission Date: 20141212
  Serious: No
  Sender: FDA-Public Use
  Company Number: US-BAYER-2014-056433

PATIENT
  Age: 46 Year
  Sex: Female
  Weight: 97.05 kg

DRUGS (2)
  1. ONE A DAY WOMENS VITACRAVES GUMMIES [Suspect]
     Dosage: 2 DF, QD WITH FOOD
     Route: 048
     Dates: start: 201402, end: 201403
  2. ALEVE CAPLET [Suspect]
     Indication: ANALGESIC THERAPY
     Dosage: 2 DF, EVERY 6 HOURS
     Route: 048

REACTIONS (3)
  - Headache [Recovered/Resolved]
  - Myalgia [Recovered/Resolved]
  - Extra dose administered [None]
